FAERS Safety Report 4538860-6 (Version None)
Quarter: 2004Q4

REPORT INFORMATION
  Report Type: 
  Country: None (occurrence: None)
  Receive Date: 20041222
  Receipt Date: 20041210
  Transmission Date: 20050328
  Serious: Yes (Hospitalization, Other)
  Sender: FDA-Public Use
  Company Number: HQWYE657617JUN03

PATIENT
  Age: 40 Year
  Sex: Male
  Weight: 91.94 kg

DRUGS (6)
  1. RAPAMUNE [Suspect]
     Indication: PROPHYLAXIS AGAINST TRANSPLANT REJECTION
     Dosage: 7 MG 1X PER 1 DAY, ORAL
     Route: 048
     Dates: start: 20030514
  2. CLOTRIMAZOLE (CLOTRIMAZOLE) [Concomitant]
  3. FAMOTIDINE [Concomitant]
  4. MULTIVITAMINS, PLAIN (MULTIVITAMINS, PLAIN) [Concomitant]
  5. VALCYTE [Concomitant]
  6. BACTRIM [Concomitant]

REACTIONS (2)
  - COMPLICATIONS OF TRANSPLANTED KIDNEY [None]
  - RENAL TUBULAR NECROSIS [None]
